FAERS Safety Report 9633375 (Version 2)
Quarter: 2013Q4

REPORT INFORMATION
  Report Type: Spontaneous
  Country: US (occurrence: US)
  Receive Date: 20131021
  Receipt Date: 20131021
  Transmission Date: 20140711
  Serious: No
  Sender: FDA-Public Use
  Company Number: US-BRISTOL-MYERS SQUIBB COMPANY-19068105

PATIENT
  Age: 77 Year
  Sex: Male

DRUGS (7)
  1. YERVOY [Suspect]
     Indication: METASTATIC MALIGNANT MELANOMA
     Dosage: PIGGY BACK.DOSES:4APR,25APR,13JUN,3JUL.?3RD:920172,920578,4TH:920578,92130.?DELAYED 30MAY-13JUN13
     Route: 042
     Dates: start: 20130404
  2. CRESTOR [Concomitant]
     Indication: PREMEDICATION
     Route: 048
  3. TYLENOL [Concomitant]
     Indication: PREMEDICATION
  4. BENADRYL [Concomitant]
     Indication: PREMEDICATION
  5. MULTIVITAMIN [Concomitant]
     Indication: PREMEDICATION
  6. ASPIRIN [Concomitant]
  7. ROSUVASTATIN [Concomitant]

REACTIONS (3)
  - Blood bilirubin increased [Unknown]
  - Aspartate aminotransferase increased [Unknown]
  - Alanine aminotransferase increased [Unknown]
